FAERS Safety Report 7180115-8 (Version None)
Quarter: 2010Q4

REPORT INFORMATION
  Report Type: 
  Country: None (occurrence: None)
  Receive Date: 20101123
  Receipt Date: 20100730
  Transmission Date: 20110411
  Serious: No
  Sender: FDA-Public Use
  Company Number: 016646

PATIENT
  Sex: Male
  Weight: 138.3 kg

DRUGS (7)
  1. CIMZIA [Suspect]
     Indication: CROHN'S DISEASE
     Dosage: (400 MG X/4 WEEKS SUBCUTANEOUS)
     Route: 058
  2. ASACOL [Concomitant]
  3. FAMOTDIINE [Concomitant]
  4. OMEPRAZOLE [Concomitant]
  5. CARAFATE [Concomitant]
  6. LIBRAX [Concomitant]
  7. EPIPEN /00003901/ [Concomitant]

REACTIONS (1)
  - FATIGUE [None]
